FAERS Safety Report 18213298 (Version 2)
Quarter: 2020Q3

REPORT INFORMATION
  Report Type: Spontaneous
  Country: AU (occurrence: AU)
  Receive Date: 20200831
  Receipt Date: 20200902
  Transmission Date: 20201103
  Serious: Yes (Hospitalization, Disabling, Other)
  Sender: FDA-Public Use
  Company Number: AU-PFIZER INC-2007028828

PATIENT
  Age: 25 Year
  Sex: Male

DRUGS (17)
  1. METHOTREXATE. [Suspect]
     Active Substance: METHOTREXATE
     Dosage: 12 MG, UNK
     Route: 037
     Dates: start: 20030609
  2. DOXORUBICIN HYDROCHLORIDE. [Concomitant]
     Active Substance: DOXORUBICIN HYDROCHLORIDE
     Indication: NON-HODGKIN^S LYMPHOMA
     Dosage: AS PER HYPER?CVAD THERAPY, FREQ: PER_CYCLE
     Route: 042
     Dates: start: 20030701, end: 20030701
  3. METHOTREXATE. [Suspect]
     Active Substance: METHOTREXATE
     Dosage: 12 MG, UNK
     Route: 037
     Dates: start: 20030110
  4. FLUDARABINE PHOSPHATE. [Concomitant]
     Active Substance: FLUDARABINE PHOSPHATE
     Indication: NON-HODGKIN^S LYMPHOMA RECURRENT
     Dosage: UNK, AFTER RELAPSE 2 MONTHS LATER, IDA?FLAG SALVAGE
     Route: 042
     Dates: start: 20031001
  5. METHOTREXATE. [Suspect]
     Active Substance: METHOTREXATE
     Indication: NON-HODGKIN^S LYMPHOMA
     Dosage: UNK, CYCLIC (HIGH DOSE; 4 CYCLES)
     Route: 042
     Dates: start: 20030101, end: 20030101
  6. METHOTREXATE. [Suspect]
     Active Substance: METHOTREXATE
     Dosage: 12 MG, UNK
     Route: 037
     Dates: start: 20031018
  7. CYCLOPHOSPHAMIDE. [Concomitant]
     Active Substance: CYCLOPHOSPHAMIDE
     Indication: NON-HODGKIN^S LYMPHOMA
     Dosage: FIRST CYCLE WITH REDUCED DOSES IN  THE SECOND AND THIRD CYCLES, FREQ: PER_CYCLE
     Route: 042
     Dates: start: 20030101, end: 20030701
  8. VITAMINS [ASCORBIC ACID;ERGOCALCIFEROL;NICOTINAMIDE;RETINOL;RIBOFLAVIN [Concomitant]
     Indication: PRODUCT USED FOR UNKNOWN INDICATION
     Dosage: UNK
  9. CYTARABINE. [Suspect]
     Active Substance: CYTARABINE
     Dosage: 100 MG, UNK
     Route: 037
     Dates: start: 20030115
  10. IDARUBICIN [Concomitant]
     Active Substance: IDARUBICIN
     Indication: NON-HODGKIN^S LYMPHOMA RECURRENT
     Dosage: UNK, AFTER RELAPSE 2 MONTHS LATER, IDA?FLAG SALVAGE
     Route: 042
     Dates: start: 20031001
  11. METHOTREXATE. [Suspect]
     Active Substance: METHOTREXATE
     Dosage: 12 MG, UNK
     Route: 037
     Dates: start: 20030312
  12. CYTARABINE. [Suspect]
     Active Substance: CYTARABINE
     Dosage: UNK, CYCLIC (HIGH DOSE; 4CYCLES)
     Route: 042
     Dates: start: 20030101, end: 20030701
  13. DEXAMETHASONE SODIUM PHOSPHATE. [Concomitant]
     Active Substance: DEXAMETHASONE SODIUM PHOSPHATE
     Indication: NON-HODGKIN^S LYMPHOMA
     Dosage: UNK
     Route: 042
     Dates: start: 20030101, end: 20030701
  14. VINCRISTINE SULFATE. [Concomitant]
     Active Substance: VINCRISTINE SULFATE
     Indication: NON-HODGKIN^S LYMPHOMA
     Dosage: REDUCED DOSES IN THE SECOND AND THIRD CYCLE, FREQ: PER_CYCLE
     Dates: start: 20030101, end: 20030701
  15. CYTARABINE. [Suspect]
     Active Substance: CYTARABINE
     Dosage: UNK (AFTER ARELAPSE 2 MONTHS LATER)
     Route: 042
  16. CYTARABINE. [Suspect]
     Active Substance: CYTARABINE
     Dosage: 100 MG, UNK
     Route: 037
     Dates: start: 20030217
  17. CYTARABINE. [Suspect]
     Active Substance: CYTARABINE
     Dosage: 100 MG, UNK
     Route: 037
     Dates: start: 20031219

REACTIONS (3)
  - Myelopathy [Not Recovered/Not Resolved]
  - Febrile neutropenia [Unknown]
  - Paralysis [Unknown]

NARRATIVE: CASE EVENT DATE: 20031222
